FAERS Safety Report 22331390 (Version 1)
Quarter: 2023Q2

REPORT INFORMATION
  Report Type: Spontaneous
  Country: US (occurrence: None)
  Receive Date: 20230515
  Receipt Date: 20230515
  Transmission Date: 20230722
  Serious: Yes (Life-Threatening)
  Sender: FDA-Public Use
  Company Number: None

PATIENT
  Age: 64 Year
  Sex: Female
  Weight: 64 kg

DRUGS (2)
  1. CEFTRIAXONE [Suspect]
     Active Substance: CEFTRIAXONE
     Indication: Urinary tract infection
     Dosage: OTHER FREQUENCY : ONCE;?
     Route: 042
     Dates: start: 20230506
  2. sterile water for injection 10 ml for reconstitution [Concomitant]
     Dates: start: 20230506

REACTIONS (8)
  - Hyponatraemia [None]
  - Leukocytosis [None]
  - Depressed level of consciousness [None]
  - Cardiac arrest [None]
  - Pulseless electrical activity [None]
  - Bundle branch block right [None]
  - Cerebrovascular accident [None]
  - Haemorrhage intracranial [None]

NARRATIVE: CASE EVENT DATE: 20230506
